FAERS Safety Report 9363646 (Version 3)
Quarter: 2013Q4

REPORT INFORMATION
  Report Type: Spontaneous
  Country: TW (occurrence: TW)
  Receive Date: 20130624
  Receipt Date: 20131008
  Transmission Date: 20140711
  Serious: Yes (Life-Threatening, Hospitalization, Other)
  Sender: FDA-Public Use
  Company Number: TW-RANBAXY-2013RR-70453

PATIENT
  Age: 30 Year
  Sex: Male

DRUGS (5)
  1. DIAZEPAM [Suspect]
     Dosage: MASSIVE QUANTITY
     Route: 048
  2. VENLAFAXINE [Suspect]
     Dosage: MASSIVE QUANTITY
     Route: 048
  3. MOCLOBEMIDE [Suspect]
     Dosage: MASSIVE QUANTITY
     Route: 048
  4. ZOLPIDEM [Suspect]
     Dosage: MASSIVE QUANTITY
     Route: 048
  5. TRAZODONE [Suspect]
     Dosage: MASSIVE QUANTITY
     Route: 048

REACTIONS (10)
  - Suicide attempt [Recovering/Resolving]
  - Intentional overdose [Recovering/Resolving]
  - Serotonin syndrome [Recovering/Resolving]
  - Rhabdomyolysis [Recovering/Resolving]
  - Renal failure acute [Recovering/Resolving]
  - Myoclonus [Recovered/Resolved]
  - Altered state of consciousness [Recovered/Resolved]
  - Hyperreflexia [Recovered/Resolved]
  - Metabolic acidosis [Recovered/Resolved]
  - Hyperkalaemia [Recovered/Resolved]
